FAERS Safety Report 18186589 (Version 1)
Quarter: 2020Q3

REPORT INFORMATION
  Report Type: Spontaneous
  Country: US (occurrence: US)
  Receive Date: 20200822
  Receipt Date: 20200822
  Transmission Date: 20201103
  Serious: Yes (Hospitalization)
  Sender: FDA-Public Use
  Company Number: None

PATIENT
  Age: 16 Year
  Sex: Male
  Weight: 66 kg

DRUGS (3)
  1. ETOPOSIDE (VP?16) [Suspect]
     Active Substance: ETOPOSIDE
     Dates: end: 20200731
  2. BLEOMYCIN [Suspect]
     Active Substance: BLEOMYCIN SULFATE
     Dates: end: 20200803
  3. CARBOPLATIN. [Suspect]
     Active Substance: CARBOPLATIN
     Dates: end: 20200727

REACTIONS (11)
  - Cough [None]
  - Mucosal inflammation [None]
  - Oropharyngeal pain [None]
  - Haemoglobin decreased [None]
  - Vomiting [None]
  - Hypophagia [None]
  - Pyrexia [None]
  - Odynophagia [None]
  - Secretion discharge [None]
  - Fatigue [None]
  - Oral pain [None]

NARRATIVE: CASE EVENT DATE: 20200807
